FAERS Safety Report 10835755 (Version 1)
Quarter: 2015Q1

REPORT INFORMATION
  Report Type: Report from Study
  Country: US (occurrence: US)
  Receive Date: 20150219
  Receipt Date: 20150219
  Transmission Date: 20150721
  Serious: No
  Sender: FDA-Public Use
  Company Number: US-ABBVIE-14P-163-1205015-00

PATIENT
  Age: 49 Year
  Sex: Female

DRUGS (2)
  1. HUMIRA [Suspect]
     Active Substance: ADALIMUMAB
     Indication: CROHN^S DISEASE
     Dates: start: 20140104
  2. ALTHIAZIDE [Concomitant]
     Active Substance: ALTHIAZIDE
     Indication: CROHN^S DISEASE

REACTIONS (5)
  - Upper respiratory tract infection [Not Recovered/Not Resolved]
  - Herpes zoster [Not Recovered/Not Resolved]
  - Bronchitis [Not Recovered/Not Resolved]
  - Infection [Not Recovered/Not Resolved]
  - Body temperature increased [Not Recovered/Not Resolved]

NARRATIVE: CASE EVENT DATE: 201401
